FAERS Safety Report 18899167 (Version 1)
Quarter: 2021Q1

REPORT INFORMATION
  Report Type: Spontaneous
  Country: FR (occurrence: FR)
  Receive Date: 20210216
  Receipt Date: 20210216
  Transmission Date: 20210420
  Serious: Yes (Other)
  Sender: FDA-Public Use
  Company Number: FR-ACCORD-217299

PATIENT
  Age: 71 Year
  Sex: Male
  Weight: 95.7 kg

DRUGS (8)
  1. IRINOTECAN [Concomitant]
     Active Substance: IRINOTECAN
  2. OXALIPLATIN ACCORD [Suspect]
     Active Substance: OXALIPLATIN
     Indication: COLON CANCER
     Route: 042
     Dates: start: 20201110, end: 20201110
  3. TELMISARTAN. [Concomitant]
     Active Substance: TELMISARTAN
  4. FLUOROURACIL. [Concomitant]
     Active Substance: FLUOROURACIL
  5. ONDANSETRON [Concomitant]
     Active Substance: ONDANSETRON
  6. METHYLPREDNISOLONE. [Concomitant]
     Active Substance: METHYLPREDNISOLONE
  7. INEGY [Concomitant]
     Active Substance: EZETIMIBE\SIMVASTATIN
  8. FOLINIC ACID [Concomitant]
     Active Substance: LEUCOVORIN

REACTIONS (3)
  - Rash [Recovered/Resolved]
  - Skin warm [Recovered/Resolved]
  - Chest pain [Recovered/Resolved]

NARRATIVE: CASE EVENT DATE: 20201110
